FAERS Safety Report 16716634 (Version 1)
Quarter: 2019Q3

REPORT INFORMATION
  Report Type: Spontaneous
  Country: FR (occurrence: FR)
  Receive Date: 20190819
  Receipt Date: 20190819
  Transmission Date: 20191005
  Serious: Yes (Other)
  Sender: FDA-Public Use
  Company Number: PHHY2019FR192066

PATIENT
  Age: 85 Year

DRUGS (3)
  1. CEFTRIAXONE. [Suspect]
     Active Substance: CEFTRIAXONE
     Indication: ARTHRITIS INFECTIVE
     Dosage: 1 G, QD
     Route: 058
  2. CEFTRIAXONE. [Suspect]
     Active Substance: CEFTRIAXONE
     Indication: ESCHERICHIA INFECTION
  3. CEFTRIAXONE. [Suspect]
     Active Substance: CEFTRIAXONE
     Indication: MORGANELLA INFECTION

REACTIONS (3)
  - Skin necrosis [Unknown]
  - Pseudomonas infection [Unknown]
  - Product use issue [Unknown]
